FAERS Safety Report 15300559 (Version 7)
Quarter: 2020Q3

REPORT INFORMATION
  Report Type: Spontaneous
  Country: GB (occurrence: GB)
  Receive Date: 20180821
  Receipt Date: 20200914
  Transmission Date: 20201102
  Serious: Yes (Death, Life-Threatening, Hospitalization, Other)
  Sender: FDA-Public Use
  Company Number: PHHY2018GB073066

PATIENT
  Age: 75 Year
  Sex: Male

DRUGS (8)
  1. PREDNISOLONE. [Suspect]
     Active Substance: PREDNISOLONE
     Indication: GIANT CELL ARTERITIS
     Dosage: 60 MG, QD
     Route: 048
  2. PREDNISOLONE. [Suspect]
     Active Substance: PREDNISOLONE
     Dosage: WEAN BY 10 MG EACH WEEK
     Route: 048
  3. METFORMIN [Suspect]
     Active Substance: METFORMIN HYDROCHLORIDE
     Indication: TYPE 2 DIABETES MELLITUS
     Dosage: UNK
     Route: 065
  4. INSULIN [Concomitant]
     Active Substance: INSULIN NOS
     Indication: TYPE 2 DIABETES MELLITUS
     Dosage: UNK
     Route: 065
  5. PREDNISOLONE. [Suspect]
     Active Substance: PREDNISOLONE
     Dosage: 10 MG, QW
     Route: 048
  6. METHYLPREDNISOLONE. [Suspect]
     Active Substance: METHYLPREDNISOLONE
     Indication: GIANT CELL ARTERITIS
     Dosage: UNK
     Route: 065
  7. METHYLPREDNISOLONE. [Suspect]
     Active Substance: METHYLPREDNISOLONE
     Dosage: AGGRESSIVELY WEANED
     Route: 065
  8. INSULIN [Concomitant]
     Active Substance: INSULIN NOS
     Indication: DIABETES MELLITUS MANAGEMENT

REACTIONS (27)
  - Hydrocephalus [Fatal]
  - Diabetic ketoacidosis [Unknown]
  - Pupil fixed [Unknown]
  - Conjunctival oedema [Unknown]
  - Rhinocerebral mucormycosis [Fatal]
  - Cavernous sinus thrombosis [Fatal]
  - Herpes simplex [Unknown]
  - Candida infection [Unknown]
  - Arteriovenous fistula [Unknown]
  - Night blindness [Unknown]
  - Klebsiella infection [Unknown]
  - Blindness unilateral [Unknown]
  - Vasculitis [Fatal]
  - Acute kidney injury [Unknown]
  - Mucormycosis [Unknown]
  - Staphylococcal infection [Unknown]
  - Skin necrosis [Unknown]
  - Headache [Unknown]
  - Subarachnoid haemorrhage [Fatal]
  - Ophthalmoplegia [Fatal]
  - Fungal infection [Unknown]
  - Eye pain [Unknown]
  - Product use in unapproved indication [Unknown]
  - Cerebellar infarction [Fatal]
  - Cerebellar artery occlusion [Fatal]
  - Periorbital cellulitis [Unknown]
  - Eye swelling [Unknown]
